FAERS Safety Report 19609310 (Version 1)
Quarter: 2021Q3

REPORT INFORMATION
  Report Type: Spontaneous
  Country: US (occurrence: US)
  Receive Date: 20210726
  Receipt Date: 20210726
  Transmission Date: 20211014
  Serious: Yes (Other)
  Sender: FDA-Public Use
  Company Number: None

PATIENT
  Age: 42 Year
  Sex: Female
  Weight: 129 kg

DRUGS (1)
  1. IRON SUCROSE [Suspect]
     Active Substance: IRON SUCROSE
     Indication: IRON DEFICIENCY ANAEMIA
     Dosage: ?          OTHER FREQUENCY:EVERY 6 WEEKS;?
     Route: 041
     Dates: start: 20150722

REACTIONS (6)
  - Fatigue [None]
  - Dyspnoea [None]
  - Hypotension [None]
  - Urticaria [None]
  - Pruritus [None]
  - Dizziness [None]

NARRATIVE: CASE EVENT DATE: 20210723
